FAERS Safety Report 4677180-6 (Version None)
Quarter: 2005Q2

REPORT INFORMATION
  Report Type: 
  Country: None (occurrence: None)
  Receive Date: 20050526
  Receipt Date: 20050526
  Transmission Date: 20051028
  Serious: Yes (Other)
  Sender: FDA-Public Use
  Company Number: None

PATIENT
  Age: 53 Year
  Sex: Female
  Weight: 106.1417 kg

DRUGS (1)
  1. WINRHO [Suspect]
     Indication: IDIOPATHIC THROMBOCYTOPENIC PURPURA
     Dosage: 7977 MCG IV
     Route: 042
     Dates: start: 20050519

REACTIONS (7)
  - ARTHRALGIA [None]
  - ASTHENIA [None]
  - BLOOD PRESSURE DECREASED [None]
  - CHROMATURIA [None]
  - DIZZINESS [None]
  - HEART RATE INCREASED [None]
  - PAIN [None]
